FAERS Safety Report 17120598 (Version 3)
Quarter: 2020Q1

REPORT INFORMATION
  Report Type: Other
  Country: CA (occurrence: CA)
  Receive Date: 20191206
  Receipt Date: 20200120
  Transmission Date: 20200409
  Serious: Yes (Other)
  Sender: FDA-Public Use
  Company Number: CA-APOTEX-2019AP025452

PATIENT
  Age: 56 Year
  Sex: Male

DRUGS (5)
  1. HYDROMORPH CONTIN [Concomitant]
     Active Substance: HYDROMORPHONE
     Indication: PRODUCT USED FOR UNKNOWN INDICATION
     Dosage: 6 MG, BID
     Route: 048
  2. METFORMIN [Suspect]
     Active Substance: METFORMIN HYDROCHLORIDE
     Indication: BLOOD GLUCOSE INCREASED
     Dosage: 500 MG, BID
     Route: 048
  3. SANDOSTATIN [Suspect]
     Active Substance: OCTREOTIDE ACETATE
     Indication: PANCREATIC NEUROENDOCRINE TUMOUR
     Dosage: 30 MG, Q.M.T.
     Route: 030
  4. SANDOSTATIN [Suspect]
     Active Substance: OCTREOTIDE ACETATE
     Indication: CARCINOID SYNDROME
  5. PANCREATIN [Concomitant]
     Active Substance: PANCRELIPASE
     Indication: PRODUCT USED FOR UNKNOWN INDICATION
     Dosage: 1 DF, UNK
     Route: 048

REACTIONS (12)
  - Diabetes mellitus [Unknown]
  - Malignant neoplasm progression [Unknown]
  - Nasopharyngitis [Unknown]
  - Diarrhoea [Unknown]
  - Withdrawal syndrome [Unknown]
  - Blood pressure decreased [Unknown]
  - Weight decreased [Unknown]
  - Body temperature decreased [Unknown]
  - Memory impairment [Unknown]
  - Nephrolithiasis [Unknown]
  - Nervousness [Unknown]
  - Drug ineffective [Unknown]
